FAERS Safety Report 9217769 (Version 1)
Quarter: 2013Q2

REPORT INFORMATION
  Report Type: Report from Study
  Country: AU (occurrence: AU)
  Receive Date: 20130408
  Receipt Date: 20130408
  Transmission Date: 20140414
  Serious: Yes (Other)
  Sender: FDA-Public Use
  Company Number: AU-VERTEX PHARMACEUTICALS INC.-2013-004579

PATIENT
  Age: 73 Year
  Sex: Female

DRUGS (2)
  1. VX-950 (TELAPREVIR) [Suspect]
     Indication: PRODUCT USED FOR UNKNOWN INDICATION
     Dosage: 375 MG, TID
     Route: 048
  2. RIBAVIRIN [Suspect]
     Indication: PRODUCT USED FOR UNKNOWN INDICATION
     Dosage: DOSAGE FORM: UNSPECIFIED
     Route: 065

REACTIONS (2)
  - Rash [Not Recovered/Not Resolved]
  - Anaemia [Unknown]
